FAERS Safety Report 19097937 (Version 2)
Quarter: 2021Q2

REPORT INFORMATION
  Report Type: Spontaneous
  Country: HU (occurrence: HU)
  Receive Date: 20210406
  Receipt Date: 20210417
  Transmission Date: 20210717
  Serious: Yes (Hospitalization, Other)
  Sender: FDA-Public Use
  Company Number: NVSC2021HU068672

PATIENT
  Age: 38 Year
  Sex: Female

DRUGS (2)
  1. TAFINLAR [Suspect]
     Active Substance: DABRAFENIB MESYLATE
     Indication: NAEVOID MELANOMA
     Dosage: 2 DF, BID
     Route: 048
     Dates: start: 20200317, end: 20210115
  2. MEKINIST [Suspect]
     Active Substance: TRAMETINIB DIMETHYL SULFOXIDE
     Indication: NAEVOID MELANOMA
     Dosage: 1 DF, QD
     Route: 048
     Dates: start: 20200317, end: 20210115

REACTIONS (12)
  - Metastases to central nervous system [Recovered/Resolved]
  - Brain oedema [Unknown]
  - Malaise [Recovering/Resolving]
  - SARS-CoV-2 test positive [Recovered/Resolved]
  - Cerebral haemorrhage [Recovered/Resolved]
  - Leukocytosis [Unknown]
  - Paraesthesia [Recovering/Resolving]
  - Cerebral cyst [Unknown]
  - Epilepsy [Unknown]
  - Hemiparesis [Recovered/Resolved]
  - Lymphopenia [Unknown]
  - Neutrophilia [Unknown]

NARRATIVE: CASE EVENT DATE: 20210107
